FAERS Safety Report 22650224 (Version 1)
Quarter: 2023Q2

REPORT INFORMATION
  Report Type: Spontaneous
  Country: CN (occurrence: CN)
  Receive Date: 20230628
  Receipt Date: 20230628
  Transmission Date: 20230722
  Serious: Yes (Hospitalization)
  Sender: FDA-Public Use
  Company Number: CN-PFIZER INC-PV202300110978

PATIENT
  Age: 11 Year
  Sex: Female
  Weight: 32 kg

DRUGS (4)
  1. METHOTREXATE SODIUM [Suspect]
     Active Substance: METHOTREXATE SODIUM
     Indication: Neoplasm
     Dosage: UNK
     Route: 037
     Dates: start: 20230516, end: 20230522
  2. METHOTREXATE SODIUM [Suspect]
     Active Substance: METHOTREXATE SODIUM
     Indication: Central nervous system leukaemia
     Dosage: 1.5 G, 1X/DAY (PUMP INJECTION)
     Dates: start: 20230524, end: 20230524
  3. CYTARABINE [Concomitant]
     Active Substance: CYTARABINE
     Indication: Neoplasm
     Dosage: UNK
     Route: 037
     Dates: start: 20230516, end: 20230522
  4. CYTARABINE [Concomitant]
     Active Substance: CYTARABINE
     Indication: Central nervous system leukaemia

REACTIONS (11)
  - Chemotherapeutic drug level below therapeutic [Unknown]
  - Colitis ulcerative [Recovering/Resolving]
  - Abdominal pain [Recovering/Resolving]
  - Diarrhoea [Recovering/Resolving]
  - Mouth injury [Recovering/Resolving]
  - Intestinal obstruction [Recovering/Resolving]
  - Gastrointestinal inflammation [Recovering/Resolving]
  - Decreased appetite [Unknown]
  - Faeces discoloured [Unknown]
  - Scab [Unknown]
  - Mouth ulceration [Unknown]

NARRATIVE: CASE EVENT DATE: 20230524
